FAERS Safety Report 9346065 (Version 2)
Quarter: 2013Q2

REPORT INFORMATION
  Report Type: Spontaneous
  Country: DE (occurrence: DE)
  Receive Date: 20130613
  Receipt Date: 20130624
  Transmission Date: 20140414
  Serious: Yes (Other)
  Sender: FDA-Public Use
  Company Number: DE-JNJFOC-20130604131

PATIENT
  Age: 78 Year
  Sex: Male
  Weight: 81 kg

DRUGS (10)
  1. XARELTO [Suspect]
     Indication: CEREBROVASCULAR ACCIDENT PROPHYLAXIS
     Route: 048
     Dates: start: 20130516, end: 20130603
  2. XARELTO [Suspect]
     Indication: ATRIAL FIBRILLATION
     Route: 048
     Dates: start: 20130516, end: 20130603
  3. METOPROLOL [Concomitant]
     Indication: HYPERTENSION
     Route: 065
  4. RAMIPRIL [Concomitant]
     Indication: HYPERTENSION
     Route: 065
  5. TORASEMID [Concomitant]
     Indication: HYPERTENSION
     Route: 065
  6. SPIRONOLACTON [Concomitant]
     Indication: HYPERTENSION
     Route: 065
  7. METFORMIN [Concomitant]
     Route: 065
  8. L-THYROXIN [Concomitant]
     Route: 065
  9. HYDROCORTISON [Concomitant]
     Route: 065
  10. PANTOPRAZOL [Concomitant]
     Route: 065

REACTIONS (6)
  - Faeces discoloured [Recovered/Resolved]
  - Skin discolouration [Recovered/Resolved]
  - Diarrhoea [Recovered/Resolved]
  - Asthenia [Unknown]
  - Headache [Unknown]
  - Dizziness [Unknown]
